FAERS Safety Report 15170618 (Version 1)
Quarter: 2018Q3

REPORT INFORMATION
  Report Type: Spontaneous
  Country: NL (occurrence: NL)
  Receive Date: 20180720
  Receipt Date: 20180720
  Transmission Date: 20181010
  Serious: Yes (Other)
  Sender: FDA-Public Use
  Company Number: NL-AUROBINDO-AUR-APL-2018-036951

PATIENT
  Age: 73 Year
  Sex: Female

DRUGS (2)
  1. PRAVASTATIN TABLET [Suspect]
     Active Substance: PRAVASTATIN
     Indication: HYPERTENSION
     Dosage: 20 MG,QD
     Route: 065
  2. EZETIMIBE. [Suspect]
     Active Substance: EZETIMIBE
     Indication: PRODUCT USED FOR UNKNOWN INDICATION
     Dosage: UNK
     Route: 065

REACTIONS (3)
  - Myalgia [Unknown]
  - Muscle rupture [Unknown]
  - Ligament rupture [Unknown]
